FAERS Safety Report 21729884 (Version 1)
Quarter: 2022Q4

REPORT INFORMATION
  Report Type: Spontaneous
  Country: US (occurrence: None)
  Receive Date: 20221214
  Receipt Date: 20221214
  Transmission Date: 20230113
  Serious: Yes (Other)
  Sender: FDA-Public Use
  Company Number: None

PATIENT
  Age: 19 Year
  Sex: Female
  Weight: 46.8 kg

DRUGS (1)
  1. TRUXIMA [Suspect]
     Active Substance: RITUXIMAB-ABBS
     Route: 042
     Dates: start: 20220915, end: 20220915

REACTIONS (7)
  - Pyrexia [None]
  - Joint swelling [None]
  - Arthralgia [None]
  - Pain in extremity [None]
  - Nausea [None]
  - Dizziness [None]
  - Pallor [None]

NARRATIVE: CASE EVENT DATE: 20220915
